FAERS Safety Report 11253474 (Version 4)
Quarter: 2015Q3

REPORT INFORMATION
  Report Type: Spontaneous
  Country: JP (occurrence: JP)
  Receive Date: 20150709
  Receipt Date: 20150908
  Transmission Date: 20151125
  Serious: Yes (Other)
  Sender: FDA-Public Use
  Company Number: JP-PFIZER INC-2015224215

PATIENT
  Age: 58 Year
  Sex: Male

DRUGS (9)
  1. MICOMBI COMBINATION [Concomitant]
     Active Substance: HYDROCHLOROTHIAZIDE\TELMISARTAN
     Indication: HYPERTENSION
     Dosage: UNK
     Route: 048
     Dates: start: 20101020
  2. KEPPRA [Concomitant]
     Active Substance: LEVETIRACETAM
     Indication: EPILEPSY
     Dosage: 1000 MG, DAILY
     Route: 048
     Dates: start: 20150701
  3. VALERIN /00228502/ [Suspect]
     Active Substance: VALPROATE SODIUM
     Indication: EPILEPSY
     Dosage: 400 MG, 2X/DAY
     Route: 048
     Dates: start: 20071113, end: 20100114
  4. VALERIN /00228502/ [Suspect]
     Active Substance: VALPROATE SODIUM
     Dosage: 600 MG, 2X/DAY
     Route: 048
     Dates: start: 20140730, end: 20150625
  5. DIOVAN [Concomitant]
     Active Substance: VALSARTAN
     Indication: HYPERTENSION
     Dosage: 80 MG, DAILY
     Route: 048
     Dates: start: 20080213, end: 20101020
  6. VALERIN /00228502/ [Suspect]
     Active Substance: VALPROATE SODIUM
     Dosage: 200 MG, 2X/DAY
     Route: 048
     Dates: start: 20150626, end: 20150729
  7. AMLODIN [Suspect]
     Active Substance: AMLODIPINE BESYLATE
     Indication: HYPERTENSION
     Dosage: 5 MG, DAILY
     Route: 048
     Dates: start: 20071113
  8. VALERIN /00228502/ [Suspect]
     Active Substance: VALPROATE SODIUM
     Dosage: 500 MG, 2X/DAY
     Route: 048
     Dates: start: 20100115, end: 20140729
  9. ZYLORIC [Concomitant]
     Active Substance: ALLOPURINOL
     Indication: HYPERURICAEMIA
     Dosage: 200 MG, DAILY
     Route: 048
     Dates: start: 20131030

REACTIONS (1)
  - Blood creatine phosphokinase increased [Not Recovered/Not Resolved]

NARRATIVE: CASE EVENT DATE: 20080109
